FAERS Safety Report 10196780 (Version 1)
Quarter: 2014Q2

REPORT INFORMATION
  Report Type: Spontaneous
  Country: US (occurrence: None)
  Receive Date: 20140523
  Receipt Date: 20140523
  Transmission Date: 20141212
  Serious: No
  Sender: FDA-Public Use
  Company Number: None

PATIENT
  Age: 70 Year
  Sex: Female
  Weight: 56.4 kg

DRUGS (2)
  1. CARBOPLATIN [Suspect]
     Dates: start: 20140324, end: 20140414
  2. PACLITAXEL [Suspect]
     Dates: start: 20140324, end: 20140414

REACTIONS (4)
  - Hyperbilirubinaemia [None]
  - Bile duct obstruction [None]
  - Hepatocellular injury [None]
  - Cholestasis [None]
